FAERS Safety Report 6410413-4 (Version None)
Quarter: 2009Q4

REPORT INFORMATION
  Report Type: 
  Country: None (occurrence: None)
  Receive Date: 20091022
  Receipt Date: 20091014
  Transmission Date: 20100525
  Serious: Yes (Other)
  Sender: FDA-Public Use
  Company Number: ZA-JNJFOC-20091004583

PATIENT
  Age: 61 Year
  Sex: Female

DRUGS (5)
  1. TOPAMAX [Suspect]
     Route: 048
  2. TOPAMAX [Suspect]
     Route: 048
  3. TOPAMAX [Suspect]
     Indication: MIGRAINE PROPHYLAXIS
     Route: 048
  4. VENLOR [Concomitant]
     Route: 065
  5. INDERAL [Concomitant]
     Route: 065

REACTIONS (2)
  - DEAFNESS [None]
  - TINNITUS [None]
